FAERS Safety Report 22113465 (Version 1)
Quarter: 2023Q1

REPORT INFORMATION
  Report Type: Spontaneous
  Country: US (occurrence: US)
  Receive Date: 20230320
  Receipt Date: 20230320
  Transmission Date: 20230418
  Serious: No
  Sender: FDA-Public Use
  Company Number: US-BRISTOL-MYERS SQUIBB COMPANY-2023-038927

PATIENT
  Sex: Female

DRUGS (1)
  1. SPRYCEL [Suspect]
     Active Substance: DASATINIB
     Indication: Product used for unknown indication

REACTIONS (6)
  - Bone pain [Unknown]
  - Toothache [Unknown]
  - Weight increased [Unknown]
  - Feeling abnormal [Unknown]
  - Cough [Unknown]
  - Depression [Unknown]
